FAERS Safety Report 16916360 (Version 2)
Quarter: 2019Q4

REPORT INFORMATION
  Report Type: Report from Study
  Country: US (occurrence: US)
  Receive Date: 20191014
  Receipt Date: 20191111
  Transmission Date: 20200122
  Serious: Yes (Hospitalization)
  Sender: FDA-Public Use
  Company Number: US-EXELIXIS-CABO-19024416

PATIENT
  Sex: Male
  Weight: 136.05 kg

DRUGS (16)
  1. AMLODIPINE BESYLATE. [Concomitant]
     Active Substance: AMLODIPINE BESYLATE
  2. NOVOLOG [Concomitant]
     Active Substance: INSULIN ASPART
  3. HUMALOG [Concomitant]
     Active Substance: INSULIN LISPRO
  4. ERYTHROMYCIN. [Concomitant]
     Active Substance: ERYTHROMYCIN
  5. MUPIROCIN. [Concomitant]
     Active Substance: MUPIROCIN
  6. CABOMETYX [Suspect]
     Active Substance: CABOZANTINIB S-MALATE
     Indication: RENAL CELL CARCINOMA
     Dosage: 60 MG, QD
     Route: 048
     Dates: start: 20190913
  7. PREDNISONE. [Concomitant]
     Active Substance: PREDNISONE
  8. PREDNISOLONE ACETATE. [Concomitant]
     Active Substance: PREDNISOLONE ACETATE
  9. CABOMETYX [Suspect]
     Active Substance: CABOZANTINIB S-MALATE
     Dosage: 60 MG, QD
     Route: 048
     Dates: start: 201910
  10. METOPROLOL TARTRATE. [Concomitant]
     Active Substance: METOPROLOL TARTRATE
  11. ADVIL [Concomitant]
     Active Substance: IBUPROFEN
  12. ONDANSETRON [Concomitant]
     Active Substance: ONDANSETRON
  13. INLYTA [Concomitant]
     Active Substance: AXITINIB
  14. IMODIUM A-D [Concomitant]
     Active Substance: LOPERAMIDE HYDROCHLORIDE
     Dosage: UNK
  15. XARELTO [Concomitant]
     Active Substance: RIVAROXABAN
  16. POTASSIUM CITRATE. [Concomitant]
     Active Substance: POTASSIUM CITRATE

REACTIONS (3)
  - Hypotension [Recovering/Resolving]
  - Rectal haemorrhage [Recovering/Resolving]
  - Diverticulitis [Recovering/Resolving]
